FAERS Safety Report 25614433 (Version 1)
Quarter: 2025Q3

REPORT INFORMATION
  Report Type: Spontaneous
  Country: GB (occurrence: GB)
  Receive Date: 20250729
  Receipt Date: 20250729
  Transmission Date: 20251020
  Serious: Yes (Other)
  Sender: NOVO NORDISK
  Company Number: None

PATIENT
  Age: 67 Year
  Sex: Male
  Weight: 163 kg

DRUGS (7)
  1. WEGOVY [Suspect]
     Active Substance: SEMAGLUTIDE
     Indication: Obesity
     Dates: start: 202506
  2. WEGOVY [Suspect]
     Active Substance: SEMAGLUTIDE
     Dates: start: 20250601
  3. ATORVASTATIN [Concomitant]
     Active Substance: ATORVASTATIN
     Indication: Hypercholesterolaemia
  4. LISINOPRIL [Concomitant]
     Active Substance: LISINOPRIL
     Indication: Hypertension
  5. OMEPRAZOLE [Concomitant]
     Active Substance: OMEPRAZOLE
     Indication: Gastrooesophageal reflux disease
  6. DENOSUMAB [Concomitant]
     Active Substance: DENOSUMAB
     Indication: Pathological fracture
  7. PENICILLIN V [Concomitant]
     Active Substance: PENICILLIN V
     Indication: Cellulitis

REACTIONS (5)
  - Muscle spasms [Recovered/Resolved]
  - Incarcerated hiatus hernia [Unknown]
  - Condition aggravated [Unknown]
  - Abdominal pain [Recovered/Resolved]
  - Constipation [Recovered/Resolved]

NARRATIVE: CASE EVENT DATE: 20250614
